FAERS Safety Report 4783487-4 (Version None)
Quarter: 2005Q3

REPORT INFORMATION
  Report Type: 
  Country: None (occurrence: None)
  Receive Date: 20050928
  Receipt Date: 20050928
  Transmission Date: 20060218
  Serious: Yes (Hospitalization)
  Sender: FDA-Public Use
  Company Number: None

PATIENT
  Age: 64 Year
  Sex: Female
  Weight: 82.1011 kg

DRUGS (2)
  1. CYCLOPHOSPHAMIDE [Suspect]
     Indication: PROSTATE CANCER
     Dosage: 100 MG DAILY PO
     Route: 048
     Dates: start: 20050819, end: 20050927
  2. ESTRAMUSTINE 140 MG [Suspect]
     Dosage: 280 MG DAILY PO
     Route: 048
     Dates: start: 20050819, end: 20050927

REACTIONS (6)
  - DIZZINESS [None]
  - FATIGUE [None]
  - HAEMATOTOXICITY [None]
  - HAEMOGLOBIN DECREASED [None]
  - OEDEMA [None]
  - RED BLOOD CELL COUNT DECREASED [None]
